FAERS Safety Report 19170415 (Version 3)
Quarter: 2021Q2

REPORT INFORMATION
  Report Type: Spontaneous
  Country: FR (occurrence: FR)
  Receive Date: 20210422
  Receipt Date: 20210520
  Transmission Date: 20210717
  Serious: Yes (Other)
  Sender: FDA-Public Use
  Company Number: FR-ARBOR PHARMACEUTICALS, LLC-FR-2021ARB000436

PATIENT
  Sex: Male
  Weight: 70 kg

DRUGS (6)
  1. TRIPTODUR [Suspect]
     Active Substance: TRIPTORELIN
  2. ACLASTA [Suspect]
     Active Substance: ZOLEDRONIC ACID
     Indication: BONE LOSS
     Dosage: UNK
     Route: 065
  3. CALCIUM [Concomitant]
     Active Substance: CALCIUM
     Indication: MINERAL SUPPLEMENTATION
     Dosage: UNK
  4. TRIPTODUR [Suspect]
     Active Substance: TRIPTORELIN
     Indication: METASTASES TO LUNG
  5. TRIPTODUR [Suspect]
     Active Substance: TRIPTORELIN
     Indication: NEOPLASM PROSTATE
     Dosage: DOSE AND STRENGTH: 11.25 MG, 3 M
     Route: 058
     Dates: start: 201509
  6. TRIPTODUR [Suspect]
     Active Substance: TRIPTORELIN

REACTIONS (6)
  - Blindness unilateral [Recovered/Resolved]
  - Drug ineffective [Unknown]
  - Product administration error [Unknown]
  - Hypersensitivity [Unknown]
  - General physical health deterioration [Recovered/Resolved]
  - Bone loss [Unknown]

NARRATIVE: CASE EVENT DATE: 2019
